FAERS Safety Report 9303140 (Version 2)
Quarter: 2013Q2

REPORT INFORMATION
  Report Type: Spontaneous
  Country: IN (occurrence: IN)
  Receive Date: 20130522
  Receipt Date: 20130528
  Transmission Date: 20140414
  Serious: Yes (Death)
  Sender: FDA-Public Use
  Company Number: IN-SANOFI-AVENTIS-2013SA051016

PATIENT
  Sex: Male

DRUGS (2)
  1. JEVTANA [Suspect]
     Indication: HORMONE-REFRACTORY PROSTATE CANCER
     Route: 042
     Dates: start: 201304
  2. JEVTANA [Suspect]
     Indication: PROSTATE CANCER
     Route: 042
     Dates: start: 201304

REACTIONS (6)
  - Cardiac arrest [Fatal]
  - Chest pain [Fatal]
  - Hypoglycaemia [Unknown]
  - Diarrhoea [Unknown]
  - Vomiting [Unknown]
  - Diarrhoea [Unknown]
